FAERS Safety Report 7701183-8 (Version None)
Quarter: 2011Q3

REPORT INFORMATION
  Report Type: 
  Country: None (occurrence: None)
  Receive Date: 20110822
  Receipt Date: 20110805
  Transmission Date: 20111222
  Serious: Yes (Hospitalization)
  Sender: FDA-Public Use
  Company Number: US-GLAXOSMITHKLINE-A0834461A

PATIENT
  Age: 55 Year
  Sex: Male

DRUGS (4)
  1. LIPITOR [Concomitant]
  2. AVANDIA [Suspect]
     Indication: DIABETES MELLITUS
     Dosage: 8MG PER DAY
     Route: 048
     Dates: start: 19990501, end: 20071231
  3. ASPIRIN [Concomitant]
  4. LOPRESSOR [Concomitant]

REACTIONS (3)
  - PAIN [None]
  - CORONARY ARTERY DISEASE [None]
  - ATRIOVENTRICULAR BLOCK [None]
